FAERS Safety Report 23446592 (Version 2)
Quarter: 2024Q1

REPORT INFORMATION
  Report Type: Spontaneous
  Country: US (occurrence: US)
  Receive Date: 20240126
  Receipt Date: 20240131
  Transmission Date: 20240410
  Serious: Yes (Death, Hospitalization)
  Sender: FDA-Public Use
  Company Number: US-PFIZER INC-PV202400010652

PATIENT
  Age: 68 Year
  Sex: Male

DRUGS (4)
  1. METHYLPREDNISOLONE [Suspect]
     Active Substance: METHYLPREDNISOLONE
     Indication: VEXAS syndrome
     Dosage: 8 MG
     Dates: start: 2018
  2. METHYLPREDNISOLONE [Suspect]
     Active Substance: METHYLPREDNISOLONE
     Indication: Lymphoma
  3. PREDNISONE [Suspect]
     Active Substance: PREDNISONE
     Indication: VEXAS syndrome
     Dosage: 10 MG, DAILY
  4. PREDNISONE [Suspect]
     Active Substance: PREDNISONE
     Indication: Lymphoma
     Dosage: 7 MG, DAILY

REACTIONS (1)
  - Acute myocardial infarction [Fatal]
